FAERS Safety Report 9910851 (Version 1)
Quarter: 2014Q1

REPORT INFORMATION
  Report Type: Spontaneous
  Country: US (occurrence: US)
  Receive Date: 20140219
  Receipt Date: 20140219
  Transmission Date: 20141002
  Serious: No
  Sender: FDA-Public Use
  Company Number: US-TEVA-463043USA

PATIENT
  Age: 31 Year
  Sex: Female
  Weight: 61.29 kg

DRUGS (1)
  1. PARAGARD 380A [Suspect]
     Indication: CONTRACEPTION
     Route: 015
     Dates: start: 20140211, end: 20140211

REACTIONS (7)
  - Dizziness [Recovered/Resolved]
  - Vaginal haemorrhage [Not Recovered/Not Resolved]
  - Menstruation irregular [Not Recovered/Not Resolved]
  - Vulvovaginal pain [Not Recovered/Not Resolved]
  - Pelvic pain [Recovered/Resolved]
  - Abdominal pain lower [Recovered/Resolved]
  - Adverse event [Recovered/Resolved]
